FAERS Safety Report 6435577-8 (Version None)
Quarter: 2009Q4

REPORT INFORMATION
  Report Type: 
  Country: None (occurrence: None)
  Receive Date: 20091111
  Receipt Date: 20091105
  Transmission Date: 20100525
  Serious: Yes (Hospitalization)
  Sender: FDA-Public Use
  Company Number: JP-WYE-H12051609

PATIENT
  Sex: Male

DRUGS (1)
  1. ZOSYN [Suspect]
     Indication: CYSTITIS
     Route: 041

REACTIONS (2)
  - INFUSION SITE EXTRAVASATION [None]
  - SKIN ULCER [None]
